FAERS Safety Report 12662325 (Version 2)
Quarter: 2016Q3

REPORT INFORMATION
  Report Type: Spontaneous
  Country: DE (occurrence: DE)
  Receive Date: 20160817
  Receipt Date: 20160829
  Transmission Date: 20161109
  Serious: Yes (Other)
  Sender: FDA-Public Use
  Company Number: DE-ALLERGAN-1665814US

PATIENT
  Age: 74 Year
  Sex: Male

DRUGS (1)
  1. LUMIGAN [Suspect]
     Active Substance: BIMATOPROST
     Indication: NORMAL TENSION GLAUCOMA
     Dosage: UNK UNK, QD
     Route: 047
     Dates: start: 20160719, end: 20160809

REACTIONS (2)
  - Macular oedema [Not Recovered/Not Resolved]
  - Blindness [Not Recovered/Not Resolved]
